FAERS Safety Report 9922386 (Version 3)
Quarter: 2014Q2

REPORT INFORMATION
  Report Type: Report from Study
  Country: US (occurrence: US)
  Receive Date: 20140225
  Receipt Date: 20140429
  Transmission Date: 20141212
  Serious: Yes (Death, Hospitalization, Other)
  Sender: FDA-Public Use
  Company Number: US-TEVA-464249USA

PATIENT
  Age: 77 Year
  Sex: Male
  Weight: 88.1 kg

DRUGS (3)
  1. DAUNORUBICIN [Suspect]
     Indication: ACUTE MYELOID LEUKAEMIA
     Dates: start: 20131224, end: 20140111
  2. CYTARABINE [Suspect]
     Indication: ACUTE MYELOID LEUKAEMIA
     Dates: end: 20140115
  3. HYPERALIMENTATION [Suspect]

REACTIONS (5)
  - Death [Fatal]
  - Respiratory distress [Unknown]
  - Pleural effusion [Unknown]
  - Pulmonary oedema [Unknown]
  - Pneumonia [Unknown]
